FAERS Safety Report 22009851 (Version 1)
Quarter: 2023Q1

REPORT INFORMATION
  Report Type: Other
  Country: AU (occurrence: AU)
  Receive Date: 20230220
  Receipt Date: 20230220
  Transmission Date: 20230418
  Serious: Yes (Death, Other)
  Sender: FDA-Public Use
  Company Number: AU-ASTELLAS-2023US005365

PATIENT
  Age: 55 Year
  Sex: Male

DRUGS (13)
  1. TACROLIMUS [Suspect]
     Active Substance: TACROLIMUS
     Indication: Product used for unknown indication
     Dosage: UNK UNK, UNKNOWN FREQ.
     Route: 065
  2. THYMOCYTE IMMUNE GLOBULIN NOS [Suspect]
     Active Substance: THYMOCYTE IMMUNE GLOBULIN NOS
     Indication: Product used for unknown indication
     Dosage: UNK UNK, UNKNOWN FREQ.
     Route: 065
  3. MYCOPHENOLATE MOFETIL [Suspect]
     Active Substance: MYCOPHENOLATE MOFETIL
     Indication: Product used for unknown indication
     Dosage: UNK UNK, UNKNOWN FREQ.
     Route: 065
  4. BELATACEPT [Suspect]
     Active Substance: BELATACEPT
     Indication: Product used for unknown indication
     Dosage: UNK UNK, UNKNOWN FREQ.
     Route: 065
  5. PREDNISONE [Suspect]
     Active Substance: PREDNISONE
     Indication: Product used for unknown indication
     Dosage: UNK UNK, UNKNOWN FREQ.
     Route: 065
  6. LAPINE T-LYMPHOCYTE IMMUNE GLOBULIN [Suspect]
     Active Substance: LAPINE T-LYMPHOCYTE IMMUNE GLOBULIN
     Indication: Product used for unknown indication
     Dosage: UNK UNK, UNKNOWN FREQ.
     Route: 065
  7. SULFAMETHOXAZOLE [Concomitant]
     Active Substance: SULFAMETHOXAZOLE
     Indication: Product used for unknown indication
     Dosage: UNK UNK, UNKNOWN FREQ.
     Route: 065
  8. TRIMETHOPRIM [Concomitant]
     Active Substance: TRIMETHOPRIM
     Indication: Product used for unknown indication
     Dosage: UNK UNK, UNKNOWN FREQ.
     Route: 065
  9. VALGANCICLOVIR [Concomitant]
     Active Substance: VALGANCICLOVIR
     Indication: Product used for unknown indication
     Dosage: UNK UNK, UNKNOWN FREQ.
     Route: 065
  10. NIFEDIPINE [Concomitant]
     Active Substance: NIFEDIPINE
     Indication: Product used for unknown indication
     Dosage: UNK UNK, UNKNOWN FREQ.
     Route: 065
  11. ATORVASTATIN [Concomitant]
     Active Substance: ATORVASTATIN
     Indication: Product used for unknown indication
     Dosage: UNK UNK, UNKNOWN FREQ.
     Route: 065
  12. ASPIRIN [Concomitant]
     Active Substance: ASPIRIN
     Indication: Product used for unknown indication
     Dosage: UNK UNK, UNKNOWN FREQ.
     Route: 065
  13. LABETALOL HYDROCHLORIDE [Concomitant]
     Active Substance: LABETALOL HYDROCHLORIDE
     Indication: Product used for unknown indication
     Dosage: UNK UNK, UNKNOWN FREQ.
     Route: 065

REACTIONS (38)
  - Death [Fatal]
  - Acute kidney injury [Unknown]
  - Cachexia [Unknown]
  - Cardiogenic shock [Unknown]
  - Cardiomyopathy [Unknown]
  - Coronary artery stenosis [Unknown]
  - Cytomegalovirus infection [Unknown]
  - Disseminated tuberculosis [Unknown]
  - Dyspnoea [Unknown]
  - Pleural effusion [Unknown]
  - Pseudomonas infection [Unknown]
  - Septic shock [Unknown]
  - Splenomegaly [Unknown]
  - Pyrexia [Unknown]
  - Arteriosclerosis coronary artery [Unknown]
  - Pulmonary mass [Unknown]
  - Abdominal discomfort [Unknown]
  - Asthenia [Unknown]
  - Chromaturia [Unknown]
  - Decreased appetite [Unknown]
  - Dizziness [Unknown]
  - Dysphagia [Unknown]
  - Fall [Unknown]
  - Fatigue [Unknown]
  - Gait disturbance [Unknown]
  - Hilar lymphadenopathy [Unknown]
  - Hypercalcaemia [Unknown]
  - Hypophagia [Unknown]
  - Hypotension [Unknown]
  - Lethargy [Unknown]
  - Lymphadenopathy mediastinal [Unknown]
  - Malaise [Unknown]
  - Mucosal dryness [Unknown]
  - Nausea [Unknown]
  - Odynophagia [Unknown]
  - Pulmonary granuloma [Unknown]
  - Rales [Unknown]
  - Weight decreased [Unknown]
